FAERS Safety Report 8308548-4 (Version None)
Quarter: 2012Q2

REPORT INFORMATION
  Report Type: 
  Country: None (occurrence: None)
  Receive Date: 20120424
  Receipt Date: 20120417
  Transmission Date: 20120825
  Serious: Yes (Hospitalization, Other)
  Sender: FDA-Public Use
  Company Number: US-JNJFOC-20100704184

PATIENT
  Sex: Male

DRUGS (3)
  1. LEVAQUIN [Suspect]
     Indication: INFECTION
     Route: 048
     Dates: start: 20090101
  2. LEVAQUIN [Suspect]
     Indication: PRODUCT USED FOR UNKNOWN INDICATION
     Route: 048
  3. PREDNISONE TAB [Suspect]
     Indication: INFLAMMATION
     Route: 065

REACTIONS (5)
  - TENDONITIS [None]
  - CARTILAGE INJURY [None]
  - ROTATOR CUFF SYNDROME [None]
  - TENDON RUPTURE [None]
  - JOINT INJURY [None]
